FAERS Safety Report 8696631 (Version 2)
Quarter: 2012Q4

REPORT INFORMATION
  Report Type: 
  Country: AU (occurrence: AU)
  Receive Date: 20120801
  Receipt Date: 20120904
  Transmission Date: 20130627
  Serious: Yes (Life-Threatening, Hospitalization, Disabling, Other)
  Sender: FDA-Public Use
  Company Number: AU-B.I. PHARMACEUTICALS,INC./RIDGEFIELD-2012-AU-01307AU

PATIENT
  Age: 60 Year
  Sex: Male

DRUGS (4)
  1. PRADAXA [Suspect]
     Indication: ATRIAL FIBRILLATION
     Dosage: 300 mg
     Dates: start: 201106, end: 201207
  2. PRADAXA [Suspect]
     Dosage: 300 mg
     Dates: start: 20120724, end: 20120724
  3. ATORVASTATIN [Concomitant]
  4. PERINDOPRIL [Concomitant]

REACTIONS (5)
  - Cerebellar infarction [Not Recovered/Not Resolved]
  - Acute myocardial infarction [Unknown]
  - Vertigo [Unknown]
  - Balance disorder [Unknown]
  - Chest pain [Unknown]
